FAERS Safety Report 25314000 (Version 2)
Quarter: 2025Q2

REPORT INFORMATION
  Report Type: Spontaneous
  Country: CO (occurrence: CO)
  Receive Date: 20250514
  Receipt Date: 20250521
  Transmission Date: 20250716
  Serious: Yes (Hospitalization)
  Sender: REGENERON
  Company Number: CO-BAYER-2025A064607

PATIENT
  Age: 57 Year
  Sex: Female

DRUGS (1)
  1. EYLEA [Suspect]
     Active Substance: AFLIBERCEPT
     Indication: Macular degeneration
     Dosage: 40 MG/ML/0.278 ML, SOLUTION FOR INJECTION
     Route: 031
     Dates: start: 2021

REACTIONS (2)
  - Leiomyoma [Recovered/Resolved]
  - Uterine haemorrhage [Recovered/Resolved]

NARRATIVE: CASE EVENT DATE: 20250128
